FAERS Safety Report 6220215-X (Version None)
Quarter: 2009Q2

REPORT INFORMATION
  Report Type: 
  Country: None (occurrence: None)
  Receive Date: 20090609
  Receipt Date: 20090526
  Transmission Date: 20091009
  Serious: Yes (Other)
  Sender: FDA-Public Use
  Company Number: GB-ELI_LILLY_AND_COMPANY-GB200904006749

PATIENT
  Sex: Female

DRUGS (3)
  1. ZYPREXA [Suspect]
     Indication: SCHIZOAFFECTIVE DISORDER
     Dosage: 30 MG, OTHER
     Route: 048
     Dates: start: 20030101
  2. MIRTAZAPINE [Concomitant]
     Dosage: 30 MG, UNK
     Route: 048
  3. PRIADEL [Concomitant]
     Dosage: 1000 MG, UNK
     Route: 048

REACTIONS (2)
  - ATRIOVENTRICULAR BLOCK SECOND DEGREE [None]
  - OVERDOSE [None]
